FAERS Safety Report 5481088-6 (Version None)
Quarter: 2007Q4

REPORT INFORMATION
  Report Type: 
  Country: None (occurrence: None)
  Receive Date: 20071003
  Receipt Date: 20070925
  Transmission Date: 20080405
  Serious: No
  Sender: FDA-Public Use
  Company Number: LTI2007A00186

PATIENT
  Age: 35 Year
  Sex: Female

DRUGS (11)
  1. ACTOS [Suspect]
     Indication: TYPE 2 DIABETES MELLITUS
     Dosage: 45 MG (45 MG, 1 IN 1 D) ORAL
     Route: 048
     Dates: start: 20030727, end: 20070906
  2. AMARYL [Concomitant]
  3. INEXIUM (ESOMEPRAZOLE) [Concomitant]
  4. MEDIATOR (BENFLUOREX HYDROCHLORIDE) [Concomitant]
  5. CYCLO 3 (MELILOTUS OFFICINALIS, RUSCUS ACULEATUS) [Concomitant]
  6. LEVOTHYROXINE SODIUM [Concomitant]
  7. RAMIPRIL [Concomitant]
  8. ATORVASTATIN CALCIUM [Concomitant]
  9. VALACYCLOVIR HCL [Concomitant]
  10. EFFEXOR [Concomitant]
  11. LORAZEPAM [Concomitant]

REACTIONS (2)
  - ANKLE FRACTURE [None]
  - FALL [None]
